FAERS Safety Report 8620160-6 (Version None)
Quarter: 2012Q3

REPORT INFORMATION
  Report Type: 
  Country: None (occurrence: None)
  Receive Date: 20120816
  Receipt Date: 20120816
  Transmission Date: 20120928
  Serious: Yes (Hospitalization)
  Sender: FDA-Public Use
  Company Number: None

PATIENT
  Age: 84 Year
  Sex: Female
  Weight: 72 kg

DRUGS (10)
  1. CHOLECALCIFEROL [Concomitant]
  2. PROPAFENONE HCL [Concomitant]
  3. MULTI-VITAMIN [Concomitant]
  4. ASPIRIN [Suspect]
     Indication: CORONARY ARTERY DISEASE
     Dosage: 81 MG DAILY PO PRIOR TO ADMISSION
     Route: 048
  5. OMEPRAZOLE [Concomitant]
  6. CALCIUM + VITAMIN D [Concomitant]
  7. WARFARIN SODIUM [Suspect]
     Indication: ATRIAL FIBRILLATION
     Dosage: 5 MG DAILY PO PRIOR TO ADMISSION
     Route: 048
  8. ATORVASTATIN [Concomitant]
  9. LISINOPRIL [Concomitant]
  10. TERAZOSIN HYDROCHLORIDE [Concomitant]

REACTIONS (9)
  - HAEMATOMA [None]
  - HAEMORRHAGIC ANAEMIA [None]
  - DIZZINESS [None]
  - HYPERHIDROSIS [None]
  - HYPOTENSION [None]
  - PAIN [None]
  - ASTHENIA [None]
  - CONSTIPATION [None]
  - FALL [None]
